FAERS Safety Report 9554496 (Version 2)
Quarter: 2013Q4

REPORT INFORMATION
  Report Type: Report from Study
  Country: BR (occurrence: BR)
  Receive Date: 20130925
  Receipt Date: 20131001
  Transmission Date: 20140711
  Serious: Yes (Hospitalization)
  Sender: FDA-Public Use
  Company Number: PHHY2013BR106703

PATIENT
  Age: 61 Year
  Sex: Female

DRUGS (12)
  1. EXELON PATCH [Suspect]
     Indication: DEMENTIA WITH LEWY BODIES
     Dosage: 4.6 MG, UNK
     Route: 062
  2. EXELON PATCH [Suspect]
     Indication: OFF LABEL USE
     Dosage: 9.5 MG, 1 PATCH A DAY
     Route: 062
     Dates: start: 20130804
  3. ZIDER [Suspect]
     Dosage: 0.5 DF, Q12H
     Dates: start: 20130925
  4. PANTOPRAZOLE [Concomitant]
     Dosage: UNK UKN, UNK
  5. DIOSMIN [Concomitant]
     Dosage: 1000 U, UNK
  6. SIMVASTATIN [Concomitant]
     Dosage: UNK UKN, UNK
  7. CLOPINE [Concomitant]
     Dosage: UNK UKN, UNK
  8. OSCAL D /00944201/ [Concomitant]
     Dosage: 2 DF, A DAY
  9. PROCIMAX [Concomitant]
     Dosage: UNK UKN, UNK
  10. CARDIZEM [Concomitant]
     Dosage: UNK UKN, UNK
  11. IMOVANE [Concomitant]
     Indication: SLEEP DISORDER
     Dosage: UNK UKN, UNK
  12. RIVOTRIL [Concomitant]
     Indication: SLEEP DISORDER
     Dosage: UNK UKN, UNK

REACTIONS (14)
  - Disorientation [Not Recovered/Not Resolved]
  - Movement disorder [Not Recovered/Not Resolved]
  - Abnormal behaviour [Unknown]
  - Application site erythema [Not Recovered/Not Resolved]
  - Application site reaction [Not Recovered/Not Resolved]
  - Application site hypersensitivity [Not Recovered/Not Resolved]
  - Application site pruritus [Not Recovered/Not Resolved]
  - Hallucination, visual [Not Recovered/Not Resolved]
  - Nausea [Recovering/Resolving]
  - Dizziness [Unknown]
  - Gait disturbance [Unknown]
  - Tremor [Unknown]
  - Application site inflammation [Not Recovered/Not Resolved]
  - Disease recurrence [Unknown]
